FAERS Safety Report 8912202 (Version 2)
Quarter: 2013Q2

REPORT INFORMATION
  Report Type: Spontaneous
  Country: AU (occurrence: AU)
  Receive Date: 20121116
  Receipt Date: 20130605
  Transmission Date: 20140414
  Serious: Yes (Death, Hospitalization, Other)
  Sender: FDA-Public Use
  Company Number: AU-ELI_LILLY_AND_COMPANY-AU201211001384

PATIENT
  Age: 25 Year
  Sex: Male

DRUGS (10)
  1. ZYPREXA RELPREVV [Suspect]
     Indication: SCHIZOPHRENIA
     Dosage: 300MG/MONTHLY
  2. ZYPREXA RELPREVV [Suspect]
     Dosage: 100 MG, 2/M
  3. OLANZAPINE [Suspect]
     Indication: SCHIZOPHRENIA, PARANOID TYPE
     Route: 048
  4. FLUOXETINE [Suspect]
     Indication: MAJOR DEPRESSION
     Dosage: UNK, UNKNOWN
  5. FLUOXETINE [Suspect]
     Dosage: 40 MG, UNKNOWN
     Route: 048
     Dates: start: 201210
  6. FLUOXETINE [Suspect]
     Dosage: 60 MG, QD
  7. SUBOXONE [Concomitant]
     Indication: DRUG WITHDRAWAL SYNDROME
     Dosage: UNK
     Dates: start: 201209
  8. PARACETAMOL [Concomitant]
  9. AMPHETAMINE [Concomitant]
     Route: 042
  10. MARIJUANA [Concomitant]

REACTIONS (6)
  - Completed suicide [Fatal]
  - Self injurious behaviour [Unknown]
  - Depressed mood [Recovered/Resolved]
  - Suicidal ideation [Recovered/Resolved]
  - Hallucination, auditory [Unknown]
  - Intentional overdose [Unknown]
